FAERS Safety Report 15739811 (Version 2)
Quarter: 2020Q2

REPORT INFORMATION
  Report Type: Report from Study
  Country: IR (occurrence: IR)
  Receive Date: 20181219
  Receipt Date: 20200528
  Transmission Date: 20200713
  Serious: Yes (Other)
  Sender: FDA-Public Use
  Company Number: IR-PFIZER INC-2018518335

PATIENT

DRUGS (2)
  1. TETRACAINE. [Concomitant]
     Active Substance: TETRACAINE
     Dosage: UNK (APPLIED TO THE OCULAR SURFACE)
     Route: 061
  2. METHYLPREDNISOLONE ACETATE. [Suspect]
     Active Substance: METHYLPREDNISOLONE ACETATE
     Indication: DIABETIC RETINAL OEDEMA
     Dosage: 40 MG ( POSTERIOR SUBTENON CAPSULE)
     Route: 021

REACTIONS (2)
  - Injection site necrosis [Recovered/Resolved]
  - Conjunctival ulcer [Recovered/Resolved]
